FAERS Safety Report 13450995 (Version 1)
Quarter: 2017Q2

REPORT INFORMATION
  Report Type: Spontaneous
  Country: US (occurrence: US)
  Receive Date: 20170418
  Receipt Date: 20170418
  Transmission Date: 20170830
  Serious: Yes (Death, Other)
  Sender: FDA-Public Use
  Company Number: US-STRIDES ARCOLAB LIMITED-2017SP006244

PATIENT

DRUGS (5)
  1. TACROLIMUS. [Suspect]
     Active Substance: TACROLIMUS
     Indication: IMMUNOSUPPRESSION
     Dosage: 0.5 MG, EVERY 12 HRS
     Route: 060
  2. BROAD SPECTRUM ANTIBIOTICS [Concomitant]
     Indication: PRODUCT USED FOR UNKNOWN INDICATION
     Dosage: UNK, UNKNOWN
     Route: 065
  3. METHYLPREDNISOLONE. [Suspect]
     Active Substance: METHYLPREDNISOLONE
     Indication: TRANSPLANT REJECTION
     Dosage: HIGH-DOSE 1 MG/KG, UNKNOWN
     Route: 065
  4. MYCOPHENOLATE MOFETIL. [Suspect]
     Active Substance: MYCOPHENOLATE MOFETIL
     Indication: IMMUNOSUPPRESSION
     Dosage: 250 MG, EVERY 12 HRS
     Route: 065
  5. METHYLPREDNISOLONE. [Suspect]
     Active Substance: METHYLPREDNISOLONE
     Indication: IMMUNOSUPPRESSION
     Dosage: 125 MG, EVERY 8 HOURS
     Route: 065

REACTIONS (14)
  - Respiratory failure [Unknown]
  - Visual impairment [Unknown]
  - Pneumonia lipoid [Unknown]
  - Mycotic endophthalmitis [Unknown]
  - Vision blurred [Unknown]
  - Fungal infection [Fatal]
  - Transplant dysfunction [Unknown]
  - Hypotension [Unknown]
  - Hypoxia [Unknown]
  - Enterococcal infection [Unknown]
  - Pneumonia [Unknown]
  - Shock [Fatal]
  - Pneumonia fungal [Unknown]
  - Renal failure [Unknown]
